FAERS Safety Report 10513998 (Version 4)
Quarter: 2015Q4

REPORT INFORMATION
  Report Type: Report from Study
  Country: CH (occurrence: CH)
  Receive Date: 20141013
  Receipt Date: 20151015
  Transmission Date: 20160304
  Serious: Yes (Hospitalization)
  Sender: FDA-Public Use
  Company Number: CH-ACTELION-A-CH2012-76517

PATIENT
  Age: 29 Year
  Sex: Male
  Weight: 69.9 kg

DRUGS (2)
  1. ZAVESCA [Suspect]
     Active Substance: MIGLUSTAT
     Indication: NIEMANN-PICK DISEASE
     Dosage: 200 MG, TID
     Route: 048
     Dates: start: 20070601
  2. ZAVESCA [Suspect]
     Active Substance: MIGLUSTAT
     Dosage: 200 MG, TID
     Route: 048
     Dates: start: 200705

REACTIONS (4)
  - X-ray gastrointestinal tract abnormal [Not Recovered/Not Resolved]
  - Colonoscopy abnormal [Not Recovered/Not Resolved]
  - Diarrhoea [Not Recovered/Not Resolved]
  - Cow^s milk intolerance [Unknown]

NARRATIVE: CASE EVENT DATE: 201403
